FAERS Safety Report 11222532 (Version 1)
Quarter: 2015Q2

REPORT INFORMATION
  Report Type: Spontaneous
  Country: FR (occurrence: FR)
  Receive Date: 20150626
  Receipt Date: 20150626
  Transmission Date: 20150821
  Serious: Yes (Other)
  Sender: FDA-Public Use
  Company Number: FR-PFIZER INC-2015182667

PATIENT
  Age: 74 Year
  Sex: Male
  Weight: 70 kg

DRUGS (1)
  1. LATANOPROST. [Suspect]
     Active Substance: LATANOPROST
     Indication: GLAUCOMA
     Dosage: 1 DROP IN THE MORNING AND 1 DROP IN THE EVENING
     Dates: start: 20141201, end: 20150601

REACTIONS (5)
  - Throat irritation [Recovered/Resolved]
  - Tracheitis [Recovered/Resolved]
  - Pharyngitis [Recovered/Resolved]
  - Cough [Recovered/Resolved]
  - Off label use [Recovered/Resolved]

NARRATIVE: CASE EVENT DATE: 20141201
